FAERS Safety Report 19772222 (Version 2)
Quarter: 2021Q3

REPORT INFORMATION
  Report Type: Spontaneous
  Country: US (occurrence: US)
  Receive Date: 20210831
  Receipt Date: 20210831
  Transmission Date: 20211014
  Serious: Yes (Life-Threatening, Hospitalization)
  Sender: FDA-Public Use
  Company Number: US-LUPIN PHARMACEUTICALS INC.-2021-16040

PATIENT
  Age: 4 Year
  Sex: Male

DRUGS (9)
  1. SODIUM BICARBONATE. [Suspect]
     Active Substance: SODIUM BICARBONATE
     Indication: VENTRICULAR TACHYARRHYTHMIA
     Dosage: AT A RATE OF 1 MEQ/KG
     Route: 065
  2. MAGNESIUM [Suspect]
     Active Substance: MAGNESIUM
     Indication: CIRCULATORY COLLAPSE
     Dosage: UNK
     Route: 065
  3. SODIUM BICARBONATE. [Suspect]
     Active Substance: SODIUM BICARBONATE
     Indication: CIRCULATORY COLLAPSE
     Dosage: 1?2 MEQ/KG
     Route: 042
  4. POTASSIUM [Suspect]
     Active Substance: POTASSIUM
     Indication: VENTRICULAR TACHYARRHYTHMIA
  5. FAT EMULSION NOS [Concomitant]
     Active Substance: EGG PHOSPHOLIPIDS\SAFFLOWER OIL\SOYBEAN OIL
     Indication: VENTRICULAR TACHYARRHYTHMIA
     Dosage: 1.5 ML/KG
     Route: 042
  6. FAT EMULSION NOS [Concomitant]
     Active Substance: EGG PHOSPHOLIPIDS\SAFFLOWER OIL\SOYBEAN OIL
     Indication: CIRCULATORY COLLAPSE
     Dosage: 0.25 ML/KG/MIN
     Route: 042
  7. MAGNESIUM [Suspect]
     Active Substance: MAGNESIUM
     Indication: VENTRICULAR TACHYARRHYTHMIA
  8. CALCIUM [Suspect]
     Active Substance: CALCIUM
     Indication: CIRCULATORY COLLAPSE
     Dosage: UNK
     Route: 065
  9. POTASSIUM [Suspect]
     Active Substance: POTASSIUM
     Indication: CIRCULATORY COLLAPSE
     Dosage: UNK
     Route: 065

REACTIONS (2)
  - Off label use [None]
  - Drug ineffective [Unknown]
